FAERS Safety Report 20726190 (Version 10)
Quarter: 2025Q2

REPORT INFORMATION
  Report Type: Spontaneous
  Country: US (occurrence: US)
  Receive Date: 20220419
  Receipt Date: 20250515
  Transmission Date: 20250716
  Serious: Yes (Other)
  Sender: PFIZER
  Company Number: US-PFIZER INC-202200186200

PATIENT
  Age: 65 Year
  Sex: Female
  Weight: 102.49 kg

DRUGS (10)
  1. IBRANCE [Suspect]
     Active Substance: PALBOCICLIB
     Indication: Breast cancer female
     Dosage: 75 MG, DAILY
     Route: 048
     Dates: start: 20210304
  2. IBRANCE [Suspect]
     Active Substance: PALBOCICLIB
     Indication: Breast cancer metastatic
     Route: 048
  3. IBRANCE [Suspect]
     Active Substance: PALBOCICLIB
     Dates: start: 20210501
  4. IBRANCE [Suspect]
     Active Substance: PALBOCICLIB
  5. IBRANCE [Suspect]
     Active Substance: PALBOCICLIB
     Dates: start: 202105
  6. LETROZOLE [Concomitant]
     Active Substance: LETROZOLE
     Indication: Breast cancer metastatic
     Dates: start: 202103, end: 202108
  7. LETROZOLE [Concomitant]
     Active Substance: LETROZOLE
     Dates: start: 20210501
  8. VERZENIO [Concomitant]
     Active Substance: ABEMACICLIB
     Indication: Breast cancer metastatic
     Dates: start: 202103, end: 202108
  9. NEURONTIN [Concomitant]
     Active Substance: GABAPENTIN
     Dosage: 300 MG, 1X/DAY (1 CAPSULE BY MOUTH EVERY NIGHT AT BEDTIME)
     Route: 048
  10. NEURONTIN [Concomitant]
     Active Substance: GABAPENTIN
     Dosage: 300 MG, 2X/DAY
     Route: 048

REACTIONS (10)
  - Spinal operation [Unknown]
  - Cerebral disorder [Unknown]
  - Dissociation [Unknown]
  - Fear [Unknown]
  - Confusional state [Unknown]
  - Fatigue [Not Recovered/Not Resolved]
  - Memory impairment [Unknown]
  - Depression [Not Recovered/Not Resolved]
  - Off label use [Unknown]
  - Product use issue [Unknown]
